FAERS Safety Report 18171133 (Version 1)
Quarter: 2020Q3

REPORT INFORMATION
  Report Type: Spontaneous
  Country: US (occurrence: US)
  Receive Date: 20200819
  Receipt Date: 20200819
  Transmission Date: 20201103
  Serious: No
  Sender: FDA-Public Use
  Company Number: US-OREXO US, INC.-ORE201911-000127

PATIENT
  Age: 63 Year
  Sex: Female

DRUGS (2)
  1. BUPRENORPHINE / NALOXONE [Suspect]
     Active Substance: BUPRENORPHINE\NALOXONE
     Indication: ABDOMINAL PAIN UPPER
  2. ZUBSOLV [Suspect]
     Active Substance: BUPRENORPHINE HYDROCHLORIDE\NALOXONE HYDROCHLORIDE
     Indication: ABDOMINAL PAIN UPPER
     Dosage: 5.7 MG/1.4 MG
     Route: 060

REACTIONS (3)
  - Product use in unapproved indication [Unknown]
  - Product taste abnormal [Unknown]
  - Abdominal discomfort [Unknown]
